FAERS Safety Report 25887480 (Version 1)
Quarter: 2025Q4

REPORT INFORMATION
  Report Type: Report from Study
  Country: EU (occurrence: EU)
  Receive Date: 20251007
  Receipt Date: 20251007
  Transmission Date: 20260118
  Serious: Yes (Hospitalization)
  Sender: ABBVIE
  Company Number: EU-ABBVIE-6287793

PATIENT
  Age: 74 Year
  Sex: Male

DRUGS (4)
  1. FOSCARBIDOPA\FOSLEVODOPA [Suspect]
     Active Substance: FOSCARBIDOPA\FOSLEVODOPA
     Indication: Product used for unknown indication
     Dosage: LOADING DOSE AT INITIATION (IF APPLICABLE): 0.9 ML.?FLOW RATE 1: 0.57ML/H, DURATION: FROM 7 H TO ...
     Route: 058
     Dates: start: 20250207
  2. FOSCARBIDOPA\FOSLEVODOPA [Suspect]
     Active Substance: FOSCARBIDOPA\FOSLEVODOPA
     Dosage: FLOW RATE 1: 0.53 ML/H, DURATION: FROM 7 H TO 21 H.
     Route: 058
     Dates: start: 2025, end: 2025
  3. FOSCARBIDOPA\FOSLEVODOPA [Suspect]
     Active Substance: FOSCARBIDOPA\FOSLEVODOPA
     Dosage: FLOW RATE 1: 0.48 ML/H, DURATION: FROM 7 H TO 21 H.?FLOW RATE 2: 0.25 ML/H, DURATION: FROM 21 H T...
     Route: 058
     Dates: start: 2025, end: 2025
  4. FOSCARBIDOPA\FOSLEVODOPA [Suspect]
     Active Substance: FOSCARBIDOPA\FOSLEVODOPA
     Dosage: LOADING DOSE AT INITIATION: 0.9 ML?INCREASE IN NIGHT FLOW TO 0.27 ML/H?EXTRA DOSE: 0.2 ML
     Route: 058
     Dates: start: 2025

REACTIONS (4)
  - Behaviour disorder [Not Recovered/Not Resolved]
  - Psychotic behaviour [Not Recovered/Not Resolved]
  - Restlessness [Not Recovered/Not Resolved]
  - Agitation [Unknown]

NARRATIVE: CASE EVENT DATE: 20250101
